FAERS Safety Report 9607015 (Version 1)
Quarter: 2013Q4

REPORT INFORMATION
  Report Type: Spontaneous
  Country: US (occurrence: US)
  Receive Date: 20131009
  Receipt Date: 20131009
  Transmission Date: 20140711
  Serious: No
  Sender: FDA-Public Use
  Company Number: US-B.I. PHARMACEUTICALS,INC./RIDGEFIELD-2013-BI-30765BP

PATIENT
  Age: 47 Year
  Sex: Female

DRUGS (7)
  1. MIRAPEX [Suspect]
     Indication: BIPOLAR I DISORDER
     Dosage: 0.25 MG
     Route: 048
     Dates: start: 20130926
  2. FLORINEF [Concomitant]
     Indication: ADDISON^S DISEASE
     Route: 048
  3. CRESTOR [Concomitant]
     Route: 048
  4. LEVOXYL [Concomitant]
     Route: 048
  5. LAMICTAL [Concomitant]
     Route: 048
  6. DEXAMETHASONE [Concomitant]
     Route: 048
  7. LITHIUM [Concomitant]
     Route: 048

REACTIONS (6)
  - Nausea [Not Recovered/Not Resolved]
  - Dizziness [Not Recovered/Not Resolved]
  - Pain [Not Recovered/Not Resolved]
  - Fatigue [Not Recovered/Not Resolved]
  - Headache [Not Recovered/Not Resolved]
  - Off label use [Not Recovered/Not Resolved]
